FAERS Safety Report 16902686 (Version 1)
Quarter: 2019Q4

REPORT INFORMATION
  Report Type: Spontaneous
  Country: US (occurrence: US)
  Receive Date: 20191010
  Receipt Date: 20191010
  Transmission Date: 20200122
  Serious: Yes (Hospitalization, Other)
  Sender: FDA-Public Use
  Company Number: US-LUPIN PHARMACEUTICALS INC.-2019-06368

PATIENT
  Age: 56 Year
  Sex: Male

DRUGS (5)
  1. AUGMENTIN [Suspect]
     Active Substance: AMOXICILLIN\CLAVULANATE POTASSIUM
     Indication: IMPETIGO
  2. VANCOMYCIN [Suspect]
     Active Substance: VANCOMYCIN
     Indication: STAPHYLOCOCCAL SEPSIS
     Dosage: UNK
     Route: 042
  3. SULFAMETHOXAZOLE AND TRIMETHOPRIM [Suspect]
     Active Substance: SULFAMETHOXAZOLE\TRIMETHOPRIM
     Indication: IMPETIGO
  4. AUGMENTIN [Suspect]
     Active Substance: AMOXICILLIN\CLAVULANATE POTASSIUM
     Indication: CELLULITIS STREPTOCOCCAL
     Dosage: UNK
     Route: 065
  5. SULFAMETHOXAZOLE AND TRIMETHOPRIM [Suspect]
     Active Substance: SULFAMETHOXAZOLE\TRIMETHOPRIM
     Indication: CELLULITIS STREPTOCOCCAL
     Dosage: UNK
     Route: 065

REACTIONS (9)
  - Temperature intolerance [Recovering/Resolving]
  - Dermatitis exfoliative [Recovered/Resolved]
  - Dermatitis exfoliative generalised [Recovered/Resolved]
  - Emotional distress [Unknown]
  - Dehydration [Recovering/Resolving]
  - Acute kidney injury [Recovering/Resolving]
  - Treatment noncompliance [Unknown]
  - Protein total decreased [Recovering/Resolving]
  - Chills [Recovering/Resolving]
